FAERS Safety Report 16145040 (Version 1)
Quarter: 2019Q2

REPORT INFORMATION
  Report Type: Spontaneous
  Country: US (occurrence: US)
  Receive Date: 20190402
  Receipt Date: 20190402
  Transmission Date: 20190711
  Serious: No
  Sender: FDA-Public Use
  Company Number: US-BIOGEN-2019BI00715482

PATIENT
  Sex: Female

DRUGS (1)
  1. TECFIDERA [Suspect]
     Active Substance: DIMETHYL FUMARATE
     Indication: MULTIPLE SCLEROSIS
     Route: 048
     Dates: start: 20190313

REACTIONS (6)
  - Flushing [Unknown]
  - Diarrhoea [Unknown]
  - Flatulence [Unknown]
  - Rash erythematous [Unknown]
  - Pruritus [Unknown]
  - Nausea [Unknown]
